FAERS Safety Report 4840931-1 (Version None)
Quarter: 2005Q4

REPORT INFORMATION
  Report Type: 
  Country: None (occurrence: None)
  Receive Date: 20051130
  Receipt Date: 20041201
  Transmission Date: 20060501
  Serious: Yes (Hospitalization)
  Sender: FDA-Public Use
  Company Number: US-BRISTOL-MYERS SQUIBB COMPANY-12781274

PATIENT
  Age: 34 Year
  Sex: Male
  Weight: 78 kg

DRUGS (5)
  1. ABILIFY [Suspect]
     Indication: SCHIZOPHRENIA
     Dosage: INCREASED TO 30 MG/DAY ON 30-NOV-2004; THEN 20 MG (DATE NOT PROVIDED)
     Route: 048
     Dates: start: 20040801, end: 20050130
  2. DEPAKOTE [Concomitant]
  3. PROLIXIN [Concomitant]
     Route: 030
  4. BENADRYL [Concomitant]
  5. ATIVAN [Concomitant]

REACTIONS (5)
  - AGGRESSION [None]
  - DEJA VU [None]
  - DELUSION [None]
  - DRUG INEFFECTIVE [None]
  - PSYCHOTIC DISORDER [None]
